FAERS Safety Report 7205681-5 (Version None)
Quarter: 2010Q4

REPORT INFORMATION
  Report Type: 
  Country: None (occurrence: None)
  Receive Date: 20101231
  Receipt Date: 20101222
  Transmission Date: 20110411
  Serious: Yes (Hospitalization)
  Sender: FDA-Public Use
  Company Number: CZ-PFIZER INC-2010177989

PATIENT
  Age: 48 Year
  Sex: Female

DRUGS (3)
  1. IBUPROFEN [Suspect]
     Dosage: UNK
     Dates: start: 19920101
  2. PAROXETINE HCL [Suspect]
     Dosage: UNK
     Dates: start: 19920101
  3. ALPRAZOLAM [Concomitant]
     Dosage: 0.5 MG, 1X/DAY

REACTIONS (2)
  - CEREBRAL HAEMORRHAGE [None]
  - SUBARACHNOID HAEMORRHAGE [None]
